FAERS Safety Report 4397666-1 (Version None)
Quarter: 2004Q3

REPORT INFORMATION
  Report Type: 
  Country: None (occurrence: None)
  Receive Date: 20040713
  Receipt Date: 20040513
  Transmission Date: 20050211
  Serious: Yes (Hospitalization)
  Sender: FDA-Public Use
  Company Number: THQ0T01226208

PATIENT
  Age: 67 Year
  Sex: Male

DRUGS (5)
  1. LANZOR (LANZOPRAZOLE) [Suspect]
     Indication: ACQUIRED PYLORIC STENOSIS
     Dosage: 15 MG (1 D); PER ORAL
     Route: 048
     Dates: start: 19960313, end: 19960328
  2. MODOPAR (MODOPAR) (TABLETS) [Suspect]
     Indication: CEREBELLAR INFARCTION
     Dosage: 375 MG, (125 MG, 3 IN 1 D); PER ORAL
     Route: 048
     Dates: start: 19940101, end: 19960101
  3. FUROSEMIDE [Interacting]
  4. CALCITONIN (CALCITONIN) [Concomitant]
  5. OEMPRAZOLE (OMEPRAZOLE) [Concomitant]

REACTIONS (13)
  - AGNOSIA [None]
  - AMNESIA [None]
  - CLONUS [None]
  - CONDITION AGGRAVATED [None]
  - CONFUSIONAL STATE [None]
  - DEMENTIA [None]
  - DIFFICULTY IN WALKING [None]
  - DYSKINESIA [None]
  - ENCEPHALOPATHY [None]
  - GAIT DISTURBANCE [None]
  - IMMOBILE [None]
  - INCONTINENCE [None]
  - MYOCLONUS [None]
